FAERS Safety Report 11801831 (Version 1)
Quarter: 2015Q4

REPORT INFORMATION
  Report Type: Spontaneous
  Country: US (occurrence: None)
  Receive Date: 20151203
  Receipt Date: 20151203
  Transmission Date: 20160305
  Serious: Yes (Other)
  Sender: FDA-Public Use
  Company Number: None

PATIENT
  Age: 53 Year
  Sex: Female

DRUGS (1)
  1. HUMIRA [Suspect]
     Active Substance: ADALIMUMAB

REACTIONS (4)
  - Injection site urticaria [None]
  - Injection site erythema [None]
  - Injection site pruritus [None]
  - Injection site warmth [None]

NARRATIVE: CASE EVENT DATE: 20151202
